FAERS Safety Report 7496635-2 (Version None)
Quarter: 2011Q2

REPORT INFORMATION
  Report Type: 
  Country: None (occurrence: None)
  Receive Date: 20110523
  Receipt Date: 20110512
  Transmission Date: 20111010
  Serious: Yes (Hospitalization, Disabling)
  Sender: FDA-Public Use
  Company Number: A0774239A

PATIENT
  Age: 55 Year
  Sex: Male
  Weight: 99.1 kg

DRUGS (7)
  1. DOXAZOSIN MESYLATE [Concomitant]
  2. INSULIN [Concomitant]
  3. LIPITOR [Concomitant]
  4. AVANDIA [Suspect]
     Dosage: 4MG TWICE PER DAY
     Route: 048
     Dates: start: 20010813, end: 20070601
  5. AVANDAMET [Suspect]
     Route: 048
  6. METFORMIN [Concomitant]
  7. ZETIA [Concomitant]

REACTIONS (1)
  - MYOCARDIAL INFARCTION [None]
